FAERS Safety Report 8548445-2 (Version None)
Quarter: 2012Q3

REPORT INFORMATION
  Report Type: 
  Country: None (occurrence: None)
  Receive Date: 20120730
  Receipt Date: 20120723
  Transmission Date: 20120928
  Serious: Yes (Hospitalization)
  Sender: FDA-Public Use
  Company Number: US-009507513-1207USA010624

PATIENT

DRUGS (7)
  1. ACEON [Suspect]
     Dosage: 10 MG, QD
     Route: 048
  2. NEXIUM [Concomitant]
  3. TRILEPTAL [Suspect]
     Dosage: 300 MG, BID
     Route: 048
  4. ASPIRIN [Concomitant]
  5. ZOCOR [Suspect]
     Dosage: 40 MG, QD
     Route: 048
  6. TENORMIN [Concomitant]
  7. LEVOTHYROXINE SODIUM [Concomitant]

REACTIONS (3)
  - ANURIA [None]
  - RHABDOMYOLYSIS [None]
  - HYPONATRAEMIA [None]
